FAERS Safety Report 19777443 (Version 2)
Quarter: 2021Q3

REPORT INFORMATION
  Report Type: Spontaneous
  Country: JP (occurrence: JP)
  Receive Date: 20210901
  Receipt Date: 20210917
  Transmission Date: 20211014
  Serious: Yes (Other)
  Sender: FDA-Public Use
  Company Number: JP-SA-2021SA252016

PATIENT
  Age: 4 Year
  Sex: Male

DRUGS (4)
  1. CALONAL [Concomitant]
     Active Substance: ACETAMINOPHEN
     Indication: UPPER RESPIRATORY TRACT INFLAMMATION
     Dosage: 0.8 G, 5 TIMES, 2?3 TIMES/DAY
     Route: 048
     Dates: start: 20210826, end: 20210831
  2. MUCODYNE [Concomitant]
     Active Substance: CARBOCYSTEINE
     Indication: UPPER RESPIRATORY TRACT INFLAMMATION
     Dosage: 0.6 G, QD
     Route: 048
     Dates: start: 20190826, end: 20190831
  3. ALLEGRA [Suspect]
     Active Substance: FEXOFENADINE HYDROCHLORIDE
     Indication: NASOPHARYNGITIS
     Dosage: 0.6 G, BID
     Route: 048
     Dates: start: 20190826, end: 20190831
  4. ASVERIN (TIPEPIDINE HIBENZATE) [Concomitant]
     Active Substance: TIPEPIDINE HIBENZATE
     Indication: UPPER RESPIRATORY TRACT INFLAMMATION
     Dosage: 0.35 MG, QD
     Route: 048
     Dates: start: 20190826, end: 20190831

REACTIONS (3)
  - Off label use [Unknown]
  - Alopecia areata [Not Recovered/Not Resolved]
  - Diffuse alopecia [Unknown]

NARRATIVE: CASE EVENT DATE: 20190826
